FAERS Safety Report 24694464 (Version 1)
Quarter: 2024Q4

REPORT INFORMATION
  Report Type: Spontaneous
  Country: US (occurrence: US)
  Receive Date: 20241204
  Receipt Date: 20241204
  Transmission Date: 20250115
  Serious: Yes (Death)
  Sender: PROCTER AND GAMBLE
  Company Number: US-PROCTER+GAMBLE-PH24009072

PATIENT
  Age: 50 Year
  Sex: Male

DRUGS (22)
  1. DIPHENHYDRAMINE HYDROCHLORIDE [Suspect]
     Active Substance: DIPHENHYDRAMINE HYDROCHLORIDE
     Dosage: UNK
  2. SALICYLIC ACID [Suspect]
     Active Substance: SALICYLIC ACID
     Dosage: UNK
  3. ACETAMINOPHEN [Suspect]
     Active Substance: ACETAMINOPHEN
     Dosage: UNK
  4. CETIRIZINE [Suspect]
     Active Substance: CETIRIZINE HYDROCHLORIDE
     Dosage: UNK
  5. TOPIRAMATE [Suspect]
     Active Substance: TOPIRAMATE
     Dosage: UNK
  6. GABAPENTIN [Suspect]
     Active Substance: GABAPENTIN
     Dosage: UNK
  7. 7-AMINOCLONAZEPAM [Suspect]
     Active Substance: 7-AMINOCLONAZEPAM
     Dosage: UNK
  8. BENZOYLECGONINE [Suspect]
     Active Substance: BENZOYLECGONINE
     Dosage: UNK
  9. ALCOHOL [Suspect]
     Active Substance: ALCOHOL
     Dosage: UNK
  10. METHADONE [Suspect]
     Active Substance: METHADONE HYDROCHLORIDE
     Dosage: UNK
  11. ALPRAZOLAM [Suspect]
     Active Substance: ALPRAZOLAM
     Dosage: CORRESPONDING METABOLITES
  12. PHENOBARBITAL [Suspect]
     Active Substance: PHENOBARBITAL
     Dosage: UNK
  13. ACETYLFENTANYL [Suspect]
     Active Substance: ACETYLFENTANYL
     Dosage: UNK
  14. FENTANYL [Suspect]
     Active Substance: FENTANYL
     Dosage: CORRESPONDING METABOLITES
  15. DEPROPIONYLFENTANYL [Suspect]
     Active Substance: DEPROPIONYLFENTANYL
     Dosage: UNK
  16. DALFAMPRIDINE [Suspect]
     Active Substance: DALFAMPRIDINE
     Dosage: UNK
  17. ACRYLFENTANYL [Suspect]
     Active Substance: ACRYLFENTANYL
     Dosage: UNK
  18. .BETA.-HYDROXYFENTANYL [Suspect]
     Active Substance: .BETA.-HYDROXYFENTANYL
     Dosage: UNK
  19. DESPROPIONYL P-FLUOROFENTANYL [Suspect]
     Active Substance: DESPROPIONYL P-FLUOROFENTANYL
     Dosage: UNK
  20. UNSPECIFIED INGREDIENT [Suspect]
     Active Substance: UNSPECIFIED INGREDIENT
     Dosage: UNK
  21. N-METHYLNORFENTANYL [Suspect]
     Active Substance: N-METHYLNORFENTANYL
     Dosage: UNK
  22. N-PHENETHYL-4-PIPERIDINONE [Suspect]
     Active Substance: N-PHENETHYL-4-PIPERIDINONE
     Dosage: UNK

REACTIONS (2)
  - Toxicity to various agents [Fatal]
  - Accidental overdose [Fatal]
